FAERS Safety Report 7299875-0 (Version None)
Quarter: 2011Q1

REPORT INFORMATION
  Report Type: 
  Country: None (occurrence: None)
  Receive Date: 20110217
  Receipt Date: 20110208
  Transmission Date: 20110831
  Serious: Yes (Hospitalization, Other)
  Sender: FDA-Public Use
  Company Number: US-ASTRAZENECA-2010SE28055

PATIENT
  Age: 51 Year
  Sex: Female

DRUGS (2)
  1. CRESTOR [Suspect]
     Route: 048
  2. NEXIUM [Suspect]
     Route: 048

REACTIONS (9)
  - LOWER EXTREMITY MASS [None]
  - UPPER RESPIRATORY TRACT INFECTION [None]
  - DIZZINESS [None]
  - FEELING ABNORMAL [None]
  - INTERVERTEBRAL DISC PROTRUSION [None]
  - KNEE ARTHROPLASTY [None]
  - BRONCHITIS [None]
  - COLOSTOMY [None]
  - INFLUENZA [None]
